FAERS Safety Report 10849086 (Version 3)
Quarter: 2015Q2

REPORT INFORMATION
  Report Type: Spontaneous
  Country: JP (occurrence: JP)
  Receive Date: 20150221
  Receipt Date: 20150415
  Transmission Date: 20150821
  Serious: Yes (Death)
  Sender: FDA-Public Use
  Company Number: JP-ABBVIE-15K-087-1350092-00

PATIENT
  Age: 75 Year
  Sex: Female
  Weight: 44 kg

DRUGS (5)
  1. FOLIC ACID. [Concomitant]
     Active Substance: FOLIC ACID
     Indication: LIVER DISORDER
     Route: 048
     Dates: start: 20140626, end: 20150205
  2. HUMIRA [Suspect]
     Active Substance: ADALIMUMAB
     Indication: RHEUMATOID ARTHRITIS
     Route: 058
     Dates: start: 20120405, end: 20150205
  3. RHEUMATREX [Suspect]
     Active Substance: METHOTREXATE SODIUM
     Route: 048
     Dates: start: 20140904, end: 20150205
  4. BAZEDOXIFENE ACETATE [Concomitant]
     Indication: OSTEOPOROSIS
     Route: 048
     Dates: start: 20120119, end: 20150205
  5. RHEUMATREX [Suspect]
     Active Substance: METHOTREXATE SODIUM
     Indication: RHEUMATOID ARTHRITIS
     Route: 048
     Dates: start: 20120119, end: 20140904

REACTIONS (2)
  - Liver function test abnormal [Recovering/Resolving]
  - Death [Fatal]

NARRATIVE: CASE EVENT DATE: 201406
